FAERS Safety Report 6057784-9 (Version None)
Quarter: 2009Q1

REPORT INFORMATION
  Report Type: 
  Country: None (occurrence: None)
  Receive Date: 20090129
  Receipt Date: 20090121
  Transmission Date: 20090719
  Serious: Yes (Other)
  Sender: FDA-Public Use
  Company Number: PHHY2009JP02486

PATIENT
  Age: 14 Year
  Sex: Male

DRUGS (3)
  1. CYCLOSPORINE [Suspect]
     Indication: CORD BLOOD TRANSPLANT THERAPY
     Dosage: UNK
  2. CYCLOPHOSPHAMIDE [Suspect]
     Dosage: UNK
  3. CYTARABINE [Suspect]
     Dosage: UNK

REACTIONS (1)
  - HEPATIC STEATOSIS [None]
